FAERS Safety Report 8181205-3 (Version None)
Quarter: 2012Q1

REPORT INFORMATION
  Report Type: 
  Country: None (occurrence: None)
  Receive Date: 20120302
  Receipt Date: 20120224
  Transmission Date: 20120608
  Serious: Yes (Other)
  Sender: FDA-Public Use
  Company Number: FR-GLAXOSMITHKLINE-B0784327A

PATIENT
  Sex: Female

DRUGS (4)
  1. FERROUS SULFATE TAB [Concomitant]
     Dosage: 1UNIT PER DAY
     Route: 048
  2. LAMICTAL [Suspect]
     Indication: EPILEPSY
     Route: 048
  3. ACIDE FOLIQUE [Concomitant]
     Dosage: 5MG PER DAY
     Route: 048
  4. URBANYL [Concomitant]
     Dosage: 5MG AS REQUIRED
     Route: 065

REACTIONS (3)
  - COMA [None]
  - MATERNAL EXPOSURE DURING PREGNANCY [None]
  - EPILEPSY [None]
